FAERS Safety Report 10153469 (Version 1)
Quarter: 2014Q2

REPORT INFORMATION
  Report Type: Spontaneous
  Country: FR (occurrence: FR)
  Receive Date: 20140505
  Receipt Date: 20140505
  Transmission Date: 20141212
  Serious: Yes (Hospitalization)
  Sender: FDA-Public Use
  Company Number: FR-MYLANLABS-2014S1009576

PATIENT
  Age: 59 Year
  Sex: Female

DRUGS (1)
  1. WARFARIN [Suspect]
     Indication: ANTICOAGULANT THERAPY
     Route: 065

REACTIONS (3)
  - Antiphospholipid syndrome [Recovering/Resolving]
  - Multi-organ failure [Recovering/Resolving]
  - Condition aggravated [Recovering/Resolving]
